FAERS Safety Report 16758755 (Version 1)
Quarter: 2019Q3

REPORT INFORMATION
  Report Type: Spontaneous
  Country: DE (occurrence: DE)
  Receive Date: 20190830
  Receipt Date: 20190830
  Transmission Date: 20191005
  Serious: Yes (Other)
  Sender: FDA-Public Use
  Company Number: DE-ALKEM LABORATORIES LIMITED-DE-ALKEM-2017-02266

PATIENT
  Age: 15 Year
  Sex: Female
  Weight: 50 kg

DRUGS (5)
  1. ESCITALOPRAM [Concomitant]
     Active Substance: ESCITALOPRAM OXALATE
     Indication: PRODUCT USED FOR UNKNOWN INDICATION
     Dosage: 15 MG, OD
     Route: 065
  2. LASEA [Concomitant]
     Indication: PRODUCT USED FOR UNKNOWN INDICATION
     Dosage: 1 DF, OD
     Route: 065
  3. QUETIAPINE FUMARATE. [Suspect]
     Active Substance: QUETIAPINE FUMARATE
     Indication: PRODUCT USED FOR UNKNOWN INDICATION
     Dosage: 400 MG, OD
     Route: 065
  4. L-THYROXIN [Concomitant]
     Active Substance: LEVOTHYROXINE SODIUM
     Indication: PRODUCT USED FOR UNKNOWN INDICATION
     Dosage: 50 ?G, OD
     Route: 065
  5. LIORAN [Concomitant]
     Active Substance: HERBALS\HOMEOPATHICS\PASSIFLORA INCARNATA FLOWER
     Indication: PRODUCT USED FOR UNKNOWN INDICATION
     Dosage: 1 DF, BID, (2 DF DOSAGE FORM EVERY 2 DAYS)
     Route: 065

REACTIONS (5)
  - Interstitial lung disease [Recovering/Resolving]
  - Chills [Recovering/Resolving]
  - Dysphonia [Recovering/Resolving]
  - Pyrexia [Recovered/Resolved]
  - Headache [Recovering/Resolving]

NARRATIVE: CASE EVENT DATE: 20170504
